FAERS Safety Report 7234151-3 (Version None)
Quarter: 2011Q1

REPORT INFORMATION
  Report Type: 
  Country: None (occurrence: None)
  Receive Date: 20110119
  Receipt Date: 20110113
  Transmission Date: 20110831
  Serious: Yes (Life-Threatening)
  Sender: FDA-Public Use
  Company Number: US-PFIZER INC-2011009084

PATIENT
  Sex: Female

DRUGS (5)
  1. TRAZODONE [Concomitant]
     Dosage: UNK
  2. CLONIDINE [Concomitant]
     Indication: HYPERTENSION
     Dosage: UNK
  3. LYRICA [Suspect]
     Indication: FIBROMYALGIA
     Dosage: 50 MG, 2X/DAY
     Route: 048
     Dates: start: 20101011, end: 20101204
  4. LYRICA [Suspect]
     Indication: PERIPHERAL NERVE INJURY
  5. XANAX [Concomitant]
     Dosage: UNK

REACTIONS (11)
  - PERSONALITY DISORDER [None]
  - DECREASED APPETITE [None]
  - EMOTIONAL DISORDER [None]
  - BALANCE DISORDER [None]
  - SCREAMING [None]
  - INSOMNIA [None]
  - MALAISE [None]
  - SUICIDAL IDEATION [None]
  - ABNORMAL BEHAVIOUR [None]
  - ANGER [None]
  - CONSTIPATION [None]
